FAERS Safety Report 6517007-0 (Version None)
Quarter: 2009Q4

REPORT INFORMATION
  Report Type: 
  Country: None (occurrence: None)
  Receive Date: 20091223
  Receipt Date: 20091214
  Transmission Date: 20100525
  Serious: Yes (Other)
  Sender: FDA-Public Use
  Company Number: GXKR2009JP13450

PATIENT
  Age: 49 Year
  Sex: Male

DRUGS (3)
  1. BENZYLPENICILLIN (NGX) [Suspect]
     Indication: ENDOCARDITIS
     Dosage: 4
     Route: 065
  2. GENTAMICIN [Concomitant]
     Indication: ENDOCARDITIS
     Dosage: 180
     Route: 065
  3. DIURETICS [Concomitant]
     Indication: ENDOCARDITIS
     Route: 065

REACTIONS (12)
  - BACK PAIN [None]
  - BACTERIAL INFECTION [None]
  - CYSTITIS HAEMORRHAGIC [None]
  - DYSURIA [None]
  - EOSINOPHILIA [None]
  - HYDRONEPHROSIS [None]
  - HYDROURETER [None]
  - LYMPHOCYTE STIMULATION TEST POSITIVE [None]
  - MICTURITION URGENCY [None]
  - PROSTATITIS [None]
  - RENAL FAILURE ACUTE [None]
  - URINARY TRACT INFECTION [None]
